FAERS Safety Report 13587142 (Version 1)
Quarter: 2017Q2

REPORT INFORMATION
  Report Type: Spontaneous
  Country: US (occurrence: US)
  Receive Date: 20170526
  Receipt Date: 20170526
  Transmission Date: 20170830
  Serious: No
  Sender: FDA-Public Use
  Company Number: US-ASTRAZENECA-2017SE54775

PATIENT
  Age: 606 Month
  Sex: Female
  Weight: 76.7 kg

DRUGS (6)
  1. ATORVASTATIN [Concomitant]
     Active Substance: ATORVASTATIN
     Indication: BLOOD CHOLESTEROL INCREASED
     Route: 048
     Dates: start: 201701
  2. METOPROLOL. [Suspect]
     Active Substance: METOPROLOL
     Indication: STENT PLACEMENT
     Dosage: WHOLE PILL DAILY
     Route: 048
     Dates: start: 201701
  3. METOPROLOL. [Suspect]
     Active Substance: METOPROLOL
     Indication: STENT PLACEMENT
     Dosage: HALF A PILL DAILY
     Route: 048
  4. BRILINTA [Suspect]
     Active Substance: TICAGRELOR
     Indication: STENT PLACEMENT
     Route: 048
     Dates: start: 201701
  5. ATORVASTATIN [Concomitant]
     Active Substance: ATORVASTATIN
     Indication: STENT PLACEMENT
     Route: 048
     Dates: start: 201701
  6. BABY ASPIRIN [Concomitant]
     Active Substance: ASPIRIN
     Route: 048
     Dates: start: 201701

REACTIONS (9)
  - Tooth infection [Unknown]
  - Hypotension [Unknown]
  - Skin discolouration [Unknown]
  - Gingivitis [Unknown]
  - Loss of consciousness [Unknown]
  - Contusion [Unknown]
  - Haematoma [Unknown]
  - Nervousness [Unknown]
  - Rash generalised [Unknown]

NARRATIVE: CASE EVENT DATE: 201703
